FAERS Safety Report 8138873 (Version 17)
Quarter: 2013Q2

REPORT INFORMATION
  Report Type: Spontaneous
  Country: CA (occurrence: CA)
  Receive Date: 20110915
  Receipt Date: 20130521
  Transmission Date: 20140414
  Serious: Yes (Other)
  Sender: FDA-Public Use
  Company Number: CA-ROCHE-GNE324027

PATIENT
  Age: 68 Year
  Sex: Female

DRUGS (5)
  1. XOLAIR [Suspect]
     Indication: ASTHMA
     Dosage: 300 MG, 1/MONTH
     Route: 058
     Dates: start: 20070214
  2. XOLAIR [Suspect]
     Route: 058
     Dates: start: 20090318
  3. XOLAIR [Suspect]
     Route: 065
     Dates: start: 20130305
  4. XOLAIR [Suspect]
     Route: 065
     Dates: start: 20130319
  5. XOLAIR [Suspect]
     Route: 065
     Dates: start: 20130402

REACTIONS (12)
  - Blood pressure systolic increased [Unknown]
  - Sinus congestion [Unknown]
  - Renal disorder [Unknown]
  - Feeling hot [Unknown]
  - Diabetes mellitus inadequate control [Unknown]
  - Asthma [Unknown]
  - Nasopharyngitis [Unknown]
  - Sneezing [Unknown]
  - Diarrhoea [Unknown]
  - Feeling of body temperature change [Unknown]
  - Drug ineffective [Unknown]
  - Conjunctival hyperaemia [Unknown]
